FAERS Safety Report 20135973 (Version 1)
Quarter: 2021Q4

REPORT INFORMATION
  Report Type: Spontaneous
  Country: US (occurrence: None)
  Receive Date: 20211130
  Receipt Date: 20211130
  Transmission Date: 20220303
  Serious: No
  Sender: FDA-Public Use
  Company Number: None

PATIENT

DRUGS (4)
  1. ONDANSETRON [Suspect]
     Active Substance: ONDANSETRON
  2. ATROPINE [Suspect]
     Active Substance: ATROPINE
  3. PHENYLEPHRINE [Suspect]
     Active Substance: PHENYLEPHRINE HYDROCHLORIDE
  4. HYDRALAZINE HCL [Suspect]
     Active Substance: HYDRALAZINE HYDROCHLORIDE

REACTIONS (4)
  - Product label confusion [None]
  - Product packaging confusion [None]
  - Product name confusion [None]
  - Product selection error [None]
